FAERS Safety Report 23924552 (Version 4)
Quarter: 2024Q3

REPORT INFORMATION
  Report Type: Spontaneous
  Country: US (occurrence: US)
  Receive Date: 20240531
  Receipt Date: 20240925
  Transmission Date: 20241016
  Serious: No
  Sender: PFIZER
  Company Number: US-PFIZER INC-202400178533

PATIENT
  Age: 18 Month
  Sex: Male
  Weight: 7.256 kg

DRUGS (1)
  1. GENOTROPIN [Suspect]
     Active Substance: SOMATROPIN
     Indication: Growth hormone deficiency
     Dosage: 0.3 MG, 1X/DAY AT NIGHT
     Dates: start: 202402

REACTIONS (3)
  - Device mechanical issue [Unknown]
  - Device leakage [Unknown]
  - Drug dose omission by device [Unknown]
